FAERS Safety Report 25013422 (Version 2)
Quarter: 2025Q2

REPORT INFORMATION
  Report Type: Spontaneous
  Country: US (occurrence: US)
  Receive Date: 20250226
  Receipt Date: 20250520
  Transmission Date: 20250717
  Serious: No
  Sender: BIOGEN
  Company Number: US-BIOGEN-2025BI01301907

PATIENT
  Sex: Female

DRUGS (7)
  1. TECFIDERA [Suspect]
     Active Substance: DIMETHYL FUMARATE
     Indication: Multiple sclerosis
     Route: 050
     Dates: start: 2022
  2. VITAMIN D3 [Concomitant]
     Active Substance: CHOLECALCIFEROL
     Route: 050
  3. GABAPENTIN [Concomitant]
     Active Substance: GABAPENTIN
     Route: 050
  4. ANASTROZOLE [Concomitant]
     Active Substance: ANASTROZOLE
     Route: 050
  5. ROSUVASTATIN CALCIUM [Concomitant]
     Active Substance: ROSUVASTATIN CALCIUM
     Route: 050
  6. KETOCONAZOLE [Concomitant]
     Active Substance: KETOCONAZOLE
     Route: 050
  7. HYDROCORTONE [Concomitant]
     Active Substance: HYDROCORTISONE
     Route: 050

REACTIONS (1)
  - Multiple sclerosis relapse [Unknown]
